FAERS Safety Report 6295985-5 (Version None)
Quarter: 2009Q3

REPORT INFORMATION
  Report Type: 
  Country: None (occurrence: None)
  Receive Date: 20090804
  Receipt Date: 20090728
  Transmission Date: 20100115
  Serious: Yes (Other)
  Sender: FDA-Public Use
  Company Number: GB-ASTRAZENECA-2009SE06086

PATIENT
  Age: 61 Year
  Sex: Female

DRUGS (7)
  1. ANASTROZOLE [Suspect]
     Indication: BREAST CANCER
     Route: 048
     Dates: start: 20080201, end: 20080601
  2. CYCLOPHOSPHAMIDE [Concomitant]
  3. EPIRUBICIN [Concomitant]
  4. ANTIDEPRESSANT NOS [Concomitant]
  5. TOLTERODINE TARTRATE [Concomitant]
  6. LANSOPRAZOLE [Concomitant]
  7. STATIN [Concomitant]

REACTIONS (2)
  - NEUROPATHY PERIPHERAL [None]
  - PARAESTHESIA [None]
